FAERS Safety Report 4852907-9 (Version None)
Quarter: 2005Q4

REPORT INFORMATION
  Report Type: 
  Country: None (occurrence: None)
  Receive Date: 20051212
  Receipt Date: 20051212
  Transmission Date: 20060501
  Serious: Yes (Other)
  Sender: FDA-Public Use
  Company Number: None

PATIENT
  Sex: Male
  Weight: 58.6 kg

DRUGS (3)
  1. GEMCITABINE [Suspect]
     Indication: ADENOCARCINOMA PANCREAS
     Dosage: SEE IMAGE
     Route: 042
     Dates: end: 20051024
  2. GEMCITABINE [Suspect]
     Indication: ADENOCARCINOMA PANCREAS
     Dosage: SEE IMAGE
     Route: 042
     Dates: start: 20051013
  3. BEVACIZUMAB [Suspect]
     Dosage: SEE IMAGE
     Route: 042

REACTIONS (1)
  - NEUTROPHIL COUNT DECREASED [None]
